FAERS Safety Report 13787498 (Version 1)
Quarter: 2017Q3

REPORT INFORMATION
  Report Type: Spontaneous
  Country: US (occurrence: US)
  Receive Date: 20170725
  Receipt Date: 20170725
  Transmission Date: 20171127
  Serious: No
  Sender: FDA-Public Use
  Company Number: US-UNITED THERAPEUTICS-UNT-2017-000453

PATIENT
  Age: 55 Year
  Sex: Female
  Weight: 108.39 kg

DRUGS (5)
  1. REMODULIN [Suspect]
     Active Substance: TREPROSTINIL
     Indication: PULMONARY ARTERIAL HYPERTENSION
     Dosage: 0.116 ?G/KG, CONTINUING
     Route: 041
     Dates: start: 20151027
  2. REMODULIN [Suspect]
     Active Substance: TREPROSTINIL
     Dosage: UNK
     Route: 041
     Dates: start: 20151105
  3. OPSUMIT [Concomitant]
     Active Substance: MACITENTAN
     Indication: PRODUCT USED FOR UNKNOWN INDICATION
  4. ADCIRCA [Concomitant]
     Active Substance: TADALAFIL
     Indication: PRODUCT USED FOR UNKNOWN INDICATION
     Dosage: UNK
  5. XARELTO [Concomitant]
     Active Substance: RIVAROXABAN
     Indication: PRODUCT USED FOR UNKNOWN INDICATION

REACTIONS (8)
  - Pulmonary arterial hypertension [Unknown]
  - Hypoaesthesia [Unknown]
  - Neck pain [Unknown]
  - Cough [Unknown]
  - Road traffic accident [Unknown]
  - Nasopharyngitis [Unknown]
  - Condition aggravated [Unknown]
  - Back pain [Unknown]

NARRATIVE: CASE EVENT DATE: 201701
